FAERS Safety Report 9404704 (Version 2)
Quarter: 2013Q3

REPORT INFORMATION
  Report Type: Spontaneous
  Country: US (occurrence: US)
  Receive Date: 20130717
  Receipt Date: 20130920
  Transmission Date: 20140515
  Serious: Yes (Other)
  Sender: FDA-Public Use
  Company Number: PHEH2013US014839

PATIENT
  Age: 74 Year
  Sex: Female
  Weight: 51 kg

DRUGS (5)
  1. RECLAST [Suspect]
     Indication: OSTEOPOROSIS
     Dosage: 5 MG, UNK
     Route: 042
     Dates: start: 20090526
  2. PRILOSEC [Concomitant]
     Route: 048
  3. VITAMIIN C [Concomitant]
     Dosage: 100-200 MG
  4. VITAMIN E [Concomitant]
     Dosage: 800 U, UNK
     Route: 048
  5. VITAMIN D NOS [Concomitant]
     Dosage: 1600 U, UNK
     Route: 048

REACTIONS (6)
  - Coeliac disease [Unknown]
  - Alopecia [Unknown]
  - Psoriasis [Unknown]
  - Scab [Unknown]
  - Rash [Recovering/Resolving]
  - Pruritus [Recovering/Resolving]
